FAERS Safety Report 4741071-2 (Version None)
Quarter: 2005Q3

REPORT INFORMATION
  Report Type: 
  Country: None (occurrence: None)
  Receive Date: 20050729
  Receipt Date: 20050301
  Transmission Date: 20060218
  Serious: Yes (Other)
  Sender: FDA-Public Use
  Company Number: 2005S1000879

PATIENT
  Age: 63 Year
  Sex: Male
  Weight: 117.9352 kg

DRUGS (9)
  1. APOKYN [Suspect]
     Indication: PARKINSON'S DISEASE
     Dosage: 0.5 MG;PRN;SC
     Dates: start: 20040901
  2. AMANTADINE [Concomitant]
  3. BACLOFEN [Concomitant]
  4. CARBIDOPA AND LEVODOPA [Concomitant]
  5. TOLCAPONE [Concomitant]
  6. CELECOXIB [Concomitant]
  7. LORAZEPAM [Concomitant]
  8. BENZONATATE [Concomitant]
  9. PRAMIPEXOLE DIHYDROCHLORIDE [Concomitant]

REACTIONS (3)
  - FALL [None]
  - GAIT DISTURBANCE [None]
  - SOMNOLENCE [None]
